FAERS Safety Report 9517289 (Version 2)
Quarter: 2013Q4

REPORT INFORMATION
  Report Type: Spontaneous
  Country: US (occurrence: US)
  Receive Date: 20130911
  Receipt Date: 20131111
  Transmission Date: 20140711
  Serious: No
  Sender: FDA-Public Use
  Company Number: US-ASTRAZENECA-2013SE55249

PATIENT
  Age: 984 Month
  Sex: Female
  Weight: 52.2 kg

DRUGS (1)
  1. SYMBICORT [Suspect]
     Indication: RESPIRATORY TRACT CONGESTION
     Dosage: 160/4.5 MCG, ONE PUFF, BID
     Route: 055
     Dates: end: 201307

REACTIONS (3)
  - Increased bronchial secretion [Unknown]
  - Cough [Unknown]
  - Drug dose omission [Unknown]
